FAERS Safety Report 5400308-7 (Version None)
Quarter: 2007Q3

REPORT INFORMATION
  Report Type: 
  Country: None (occurrence: None)
  Receive Date: 20070730
  Receipt Date: 20070723
  Transmission Date: 20080115
  Serious: Yes (Death, Hospitalization)
  Sender: FDA-Public Use
  Company Number: KR-BRISTOL-MYERS SQUIBB COMPANY-13039532

PATIENT
  Age: 70 Year
  Sex: Male

DRUGS (3)
  1. CETUXIMAB [Suspect]
     Indication: NON-SMALL CELL LUNG CANCER
     Dosage: FIRST INFUSION, MOST RECENT INFUSION 16-JUN-05 (2ND DOSE).
     Route: 041
     Dates: start: 20050609
  2. CISPLATIN [Suspect]
     Indication: NON-SMALL CELL LUNG CANCER
     Dosage: FIRST INFUSION
     Route: 042
     Dates: start: 20050609
  3. VINORELBINE [Suspect]
     Indication: NON-SMALL CELL LUNG CANCER
     Dosage: FIRST INFUSION, MOST RECENT INFUSION 16-JUN-05 (2ND DOSE).
     Route: 042
     Dates: start: 20050609

REACTIONS (5)
  - METABOLIC ACIDOSIS [None]
  - NEUTROPENIA [None]
  - PNEUMONIA [None]
  - PNEUMOTHORAX [None]
  - SEPTIC SHOCK [None]
